FAERS Safety Report 6579964-6 (Version None)
Quarter: 2010Q1

REPORT INFORMATION
  Report Type: 
  Country: None (occurrence: None)
  Receive Date: 20100212
  Receipt Date: 20100202
  Transmission Date: 20100710
  Serious: Yes (Other)
  Sender: FDA-Public Use
  Company Number: BR-PFIZER INC-2010013807

PATIENT
  Sex: Male
  Weight: 70 kg

DRUGS (2)
  1. LIPITOR [Suspect]
     Indication: BLOOD CHOLESTEROL INCREASED
     Dosage: UNK
     Route: 048
  2. ALCOHOL [Suspect]
     Dosage: UNK

REACTIONS (3)
  - ALCOHOL ABUSE [None]
  - INTENTIONAL DRUG MISUSE [None]
  - TONGUE PARALYSIS [None]
